FAERS Safety Report 23406038 (Version 1)
Quarter: 2024Q1

REPORT INFORMATION
  Report Type: Spontaneous
  Country: US (occurrence: None)
  Receive Date: 20240114
  Receipt Date: 20240114
  Transmission Date: 20240410
  Serious: Yes (Disabling)
  Sender: FDA-Public Use
  Company Number: None

PATIENT
  Age: 65 Year
  Sex: Female
  Weight: 47.7 kg

DRUGS (5)
  1. RECLAST [Suspect]
     Active Substance: ZOLEDRONIC ACID
     Indication: Osteopenia
     Dosage: OTHER STRENGTH : DO NOT KNOW;?OTHER QUANTITY : 100 ML;?OTHER FREQUENCY : ONCE;?
     Route: 042
     Dates: start: 20231213
  2. ATORVASTATIN [Concomitant]
     Active Substance: ATORVASTATIN
  3. ESCTALOPRAM [Concomitant]
  4. TRAZODONE [Concomitant]
     Active Substance: TRAZODONE HYDROCHLORIDE
  5. VITAMIN D [Concomitant]
     Active Substance: VITAMIN D NOS

REACTIONS (4)
  - Influenza like illness [None]
  - Conjunctivitis allergic [None]
  - Headache [None]
  - Pain [None]

NARRATIVE: CASE EVENT DATE: 20231216
